FAERS Safety Report 11400112 (Version 1)
Quarter: 2015Q3

REPORT INFORMATION
  Report Type: Spontaneous
  Country: FR (occurrence: FR)
  Receive Date: 20150820
  Receipt Date: 20150820
  Transmission Date: 20151125
  Serious: Yes (Other)
  Sender: FDA-Public Use
  Company Number: FR-ABBVIE-15P-056-1448650-00

PATIENT
  Age: 79 Year
  Sex: Female

DRUGS (3)
  1. ZECLAR [Suspect]
     Active Substance: CLARITHROMYCIN
     Indication: INTERSTITIAL LUNG DISEASE
     Route: 048
     Dates: start: 20150109
  2. MYAMBUTOL [Suspect]
     Active Substance: ETHAMBUTOL HYDROCHLORIDE
     Indication: INTERSTITIAL LUNG DISEASE
     Route: 048
     Dates: start: 20150109
  3. RIFADINE [Suspect]
     Active Substance: RIFAMPIN
     Indication: INTERSTITIAL LUNG DISEASE
     Route: 048
     Dates: start: 20150109

REACTIONS (5)
  - Dysgeusia [Unknown]
  - Nausea [Unknown]
  - Abdominal discomfort [Unknown]
  - Decreased appetite [Unknown]
  - Major depression [Unknown]

NARRATIVE: CASE EVENT DATE: 201501
